FAERS Safety Report 8571739-1 (Version None)
Quarter: 2012Q3

REPORT INFORMATION
  Report Type: 
  Country: None (occurrence: None)
  Receive Date: 20120806
  Receipt Date: 20120802
  Transmission Date: 20120928
  Serious: Yes (Hospitalization)
  Sender: FDA-Public Use
  Company Number: PHHY2012CN059638

PATIENT
  Sex: Male
  Weight: 65 kg

DRUGS (4)
  1. SANDOSTATIN LAR [Suspect]
     Route: 030
  2. SANDOSTATIN LAR [Suspect]
     Route: 030
  3. SANDOSTATIN LAR [Suspect]
     Dosage: 20 MG, QMO
     Route: 030
     Dates: start: 20120629
  4. SANDOSTATIN LAR [Suspect]
     Indication: PANCREATIC CARCINOMA
     Route: 030

REACTIONS (12)
  - HAEMORRHAGE SUBCUTANEOUS [None]
  - C-REACTIVE PROTEIN INCREASED [None]
  - CONTUSION [None]
  - EFFUSION [None]
  - BLOOD PRESSURE DECREASED [None]
  - INJECTION SITE INDURATION [None]
  - HAEMOGLOBIN DECREASED [None]
  - OEDEMA PERIPHERAL [None]
  - ARTHRALGIA [None]
  - ERYTHEMA [None]
  - JOINT SWELLING [None]
  - PYREXIA [None]
